FAERS Safety Report 6937379-2 (Version None)
Quarter: 2010Q3

REPORT INFORMATION
  Report Type: 
  Country: None (occurrence: None)
  Receive Date: 20100823
  Receipt Date: 20100813
  Transmission Date: 20110219
  Serious: Yes (Other)
  Sender: FDA-Public Use
  Company Number: US-AMGEN-QUU431561

PATIENT
  Sex: Male

DRUGS (3)
  1. NPLATE [Suspect]
     Indication: IDIOPATHIC THROMBOCYTOPENIC PURPURA
     Dates: start: 20090209, end: 20100323
  2. RITUXIMAB [Concomitant]
     Dates: start: 20090207, end: 20090227
  3. DAPSONE [Concomitant]

REACTIONS (2)
  - EMBOLISM ARTERIAL [None]
  - THROMBOSIS [None]
